FAERS Safety Report 4915183-4 (Version None)
Quarter: 2006Q1

REPORT INFORMATION
  Report Type: 
  Country: None (occurrence: None)
  Receive Date: 20060216
  Receipt Date: 20060216
  Transmission Date: 20060701
  Serious: Yes (Hospitalization)
  Sender: FDA-Public Use
  Company Number: None

PATIENT
  Sex: Male
  Weight: 88.4514 kg

DRUGS (4)
  1. HUMALOG [Suspect]
     Indication: DIABETES MELLITUS
     Dosage: 8 UNITS X 1 DOSE
     Dates: start: 20051021
  2. TOPROL [Concomitant]
  3. LANTUS [Concomitant]
  4. HUMALOG [Concomitant]

REACTIONS (2)
  - BLOOD GLUCOSE DECREASED [None]
  - MENTAL STATUS CHANGES [None]
